FAERS Safety Report 6191153-6 (Version None)
Quarter: 2009Q2

REPORT INFORMATION
  Report Type: 
  Country: None (occurrence: None)
  Receive Date: 20090515
  Receipt Date: 20090507
  Transmission Date: 20091009
  Serious: Yes (Other)
  Sender: FDA-Public Use
  Company Number: JM-JNJFOC-20090502278

PATIENT
  Age: 25 Year
  Sex: Female

DRUGS (4)
  1. HALDOL [Suspect]
     Indication: BIPOLAR DISORDER
     Route: 065
  2. LITHIUM CARBONATE [Suspect]
     Indication: BIPOLAR DISORDER
     Route: 065
  3. COGENTIN [Suspect]
     Indication: BIPOLAR DISORDER
     Route: 065
  4. MULTI-VITAMINS [Concomitant]
     Route: 065

REACTIONS (5)
  - DRUG EXPOSURE DURING PREGNANCY [None]
  - HYPERTENSION [None]
  - LIPIDS DECREASED [None]
  - PLACENTAL DISORDER [None]
  - WEIGHT DECREASED [None]
